FAERS Safety Report 18913892 (Version 7)
Quarter: 2024Q3

REPORT INFORMATION
  Report Type: Report from Study
  Country: US (occurrence: US)
  Receive Date: 20210219
  Receipt Date: 20240916
  Transmission Date: 20241017
  Serious: No
  Sender: NOVARTIS
  Company Number: NVSC2021US030602

PATIENT
  Age: 5 Year
  Sex: Male

DRUGS (5)
  1. ILARIS [Suspect]
     Active Substance: CANAKINUMAB
     Indication: Pyrexia
     Dosage: 80 MG, EVERY 8 WEEKS
     Route: 058
     Dates: start: 20200629
  2. ILARIS [Suspect]
     Active Substance: CANAKINUMAB
     Dosage: 80 MG, EVERY 8 WEEKS
     Route: 058
  3. ILARIS [Suspect]
     Active Substance: CANAKINUMAB
     Dosage: 90 MG (0.6 ML), EVERY 4 WEEKS
     Route: 058
  4. ILARIS [Suspect]
     Active Substance: CANAKINUMAB
     Dosage: 105 MG (0.7 ML)
     Route: 065
     Dates: start: 20230127
  5. ILARIS [Suspect]
     Active Substance: CANAKINUMAB
     Dosage: 105 MG, OTHER (ONCE EVERY 5 WEEKS)
     Route: 058

REACTIONS (2)
  - Inappropriate schedule of product administration [Unknown]
  - Product prescribing error [Unknown]

NARRATIVE: CASE EVENT DATE: 20210205
